FAERS Safety Report 5786751-5 (Version None)
Quarter: 2008Q2

REPORT INFORMATION
  Report Type: 
  Country: None (occurrence: None)
  Receive Date: 20080618
  Receipt Date: 20080604
  Transmission Date: 20081010
  Serious: Yes (Life-Threatening, Hospitalization)
  Sender: FDA-Public Use
  Company Number: 8033486

PATIENT
  Age: 14 Year
  Sex: Male

DRUGS (7)
  1. PREDNISOLONE [Suspect]
     Indication: B-CELL LYMPHOMA
     Dates: start: 19970101
  2. CYCLOPHOSPHAMIDE [Suspect]
     Indication: B-CELL LYMPHOMA
     Dates: start: 19970101
  3. CYTARABINE [Suspect]
     Indication: B-CELL LYMPHOMA
     Dates: start: 19970101
  4. METHOTREXATE [Suspect]
     Indication: B-CELL LYMPHOMA
     Dates: start: 19970101
  5. VINCRISTINE [Suspect]
     Indication: B-CELL LYMPHOMA
     Dates: start: 19970101
  6. ANTIHYPERTENSIVE [Concomitant]
  7. MESNA [Concomitant]

REACTIONS (3)
  - BLADDER TELANGIECTASIA [None]
  - HAEMATURIA [None]
  - NOCTURIA [None]
